FAERS Safety Report 20477725 (Version 2)
Quarter: 2022Q1

REPORT INFORMATION
  Report Type: Report from Study
  Country: FR (occurrence: FR)
  Receive Date: 20220216
  Receipt Date: 20220308
  Transmission Date: 20220424
  Serious: Yes (Other)
  Sender: FDA-Public Use
  Company Number: FR-ABBVIE-22K-056-4280033-00

PATIENT
  Age: 68 Year
  Sex: Male

DRUGS (3)
  1. CARBIDOPA\LEVODOPA [Suspect]
     Active Substance: CARBIDOPA\LEVODOPA
     Indication: Parkinson^s disease
     Dosage: CONTINUOUS FLOW RATE 5.2 ML/H
     Route: 050
     Dates: start: 202010, end: 20220128
  2. CARBIDOPA\LEVODOPA [Suspect]
     Active Substance: CARBIDOPA\LEVODOPA
     Dosage: CONTINUOUS FLOW RATE 5.4 ML/H
     Route: 050
     Dates: start: 20220128, end: 2022
  3. CARBIDOPA\LEVODOPA [Suspect]
     Active Substance: CARBIDOPA\LEVODOPA
     Dosage: CONTINUOUS FLOW RATE 5.6 ML/H
     Route: 050
     Dates: start: 2022

REACTIONS (1)
  - Obstruction [Not Recovered/Not Resolved]

NARRATIVE: CASE EVENT DATE: 20220128
